FAERS Safety Report 4984199-4 (Version None)
Quarter: 2006Q2

REPORT INFORMATION
  Report Type: 
  Country: None (occurrence: None)
  Receive Date: 20060427
  Receipt Date: 20060419
  Transmission Date: 20061013
  Serious: Yes (Other)
  Sender: FDA-Public Use
  Company Number: GB-JNJFOC-20060404471

PATIENT
  Age: 3 Year
  Sex: Female

DRUGS (1)
  1. VERMOX [Suspect]
     Indication: DRUG USE FOR UNKNOWN INDICATION
     Dosage: SINGLE DOSE
     Route: 065

REACTIONS (1)
  - HENOCH-SCHONLEIN PURPURA [None]
